FAERS Safety Report 24390727 (Version 2)
Quarter: 2024Q4

REPORT INFORMATION
  Report Type: Report from Study
  Country: TH (occurrence: TH)
  Receive Date: 20241003
  Receipt Date: 20241005
  Transmission Date: 20250114
  Serious: Yes (Hospitalization, Other)
  Sender: NOVARTIS
  Company Number: TH-002147023-NVSC2024TH192397

PATIENT
  Age: 36 Year
  Sex: Female

DRUGS (2)
  1. KISQALI [Suspect]
     Active Substance: RIBOCICLIB
     Indication: Breast cancer metastatic
     Dosage: 3 TABLETS AFTER MEAL
     Route: 048
     Dates: start: 20240828, end: 20240917
  2. KISQALI [Suspect]
     Active Substance: RIBOCICLIB
     Dosage: 3 DOSAGE FORM, QD (AFTER MEAL)
     Route: 048

REACTIONS (13)
  - Metastases to liver [Unknown]
  - Illness [Recovered/Resolved]
  - Varicella [Unknown]
  - Blister [Unknown]
  - Pyrexia [Unknown]
  - Rash [Unknown]
  - Rhinorrhoea [Unknown]
  - Rash macular [Unknown]
  - Granuloma [Unknown]
  - White blood cell count decreased [Recovered/Resolved]
  - Neutrophil count decreased [Recovered/Resolved]
  - Neutropenia [Recovered/Resolved]
  - Metastases to lung [Unknown]

NARRATIVE: CASE EVENT DATE: 20240919
